FAERS Safety Report 7248956-6 (Version None)
Quarter: 2010Q4

REPORT INFORMATION
  Report Type: 
  Country: None (occurrence: None)
  Receive Date: 20101013
  Receipt Date: 20100929
  Transmission Date: 20110411
  Serious: Yes (Hospitalization)
  Sender: FDA-Public Use
  Company Number: 2010026613

PATIENT
  Age: 57 Year
  Sex: Male

DRUGS (17)
  1. PRIVIGEN [Suspect]
     Indication: ANTIBODY TEST POSITIVE
     Dosage: SEE IMAGE:  INTRAVENOUS
     Route: 042
     Dates: start: 20100923, end: 20100923
  2. PRIVIGEN [Suspect]
     Dosage: SEE IMAGE:  INTRAVENOUS
     Route: 042
     Dates: start: 20100924, end: 20100925
  3. CELLCEPT [Concomitant]
  4. PROGRAF [Concomitant]
  5. ROVALCYTE (VALGANCICLOVIR) [Concomitant]
  6. ZITHROMAX [Concomitant]
  7. BACTRIM-FORTE (BACTRIM) [Concomitant]
  8. TRIFLUCAN (FLUCONAZOLE) [Concomitant]
  9. NEXIUM [Concomitant]
  10. NOVOLOG [Concomitant]
  11. ACETAMINOPHEN [Concomitant]
  12. MORPHINE SULFATE [Concomitant]
  13. MOTILIUM [Concomitant]
  14. STILNOX [Concomitant]
  15. TARDYFERON [Concomitant]
  16. ATARAX [Concomitant]
  17. MAGNE-B6 (DYNAMAG) [Concomitant]

REACTIONS (3)
  - CHEST X-RAY ABNORMAL [None]
  - OXYGEN SATURATION DECREASED [None]
  - RESPIRATORY DISTRESS [None]
